FAERS Safety Report 8175999-0 (Version None)
Quarter: 2012Q1

REPORT INFORMATION
  Report Type: 
  Country: None (occurrence: None)
  Receive Date: 20120227
  Receipt Date: 20120227
  Transmission Date: 20120608
  Serious: No
  Sender: FDA-Public Use
  Company Number: None

PATIENT
  Age: 12 Year
  Sex: Female
  Weight: 49.8957 kg

DRUGS (2)
  1. CONCERTA [Concomitant]
  2. ZOLOFT [Suspect]
     Indication: ASPERGER'S DISORDER
     Dosage: 50MG QD PO
     Route: 048

REACTIONS (3)
  - PRODUCT SUBSTITUTION ISSUE [None]
  - ABNORMAL FAECES [None]
  - ABDOMINAL PAIN [None]
